FAERS Safety Report 7457761-7 (Version None)
Quarter: 2011Q2

REPORT INFORMATION
  Report Type: 
  Country: None (occurrence: None)
  Receive Date: 20110504
  Receipt Date: 20110429
  Transmission Date: 20111010
  Serious: Yes (Hospitalization)
  Sender: FDA-Public Use
  Company Number: US-ROCHE-774539

PATIENT
  Sex: Male

DRUGS (3)
  1. CEFTRIAXONE SODIUM [Suspect]
     Indication: PNEUMONIA
     Route: 065
  2. AVODART [Suspect]
     Route: 065
     Dates: start: 20050505
  3. AZITHROMYCIN [Suspect]
     Indication: PNEUMONIA
     Route: 065

REACTIONS (1)
  - ILL-DEFINED DISORDER [None]
